FAERS Safety Report 9197579 (Version 3)
Quarter: 2013Q3

REPORT INFORMATION
  Report Type: Spontaneous
  Country: JP (occurrence: JP)
  Receive Date: 20130328
  Receipt Date: 20130716
  Transmission Date: 20140515
  Serious: Yes (Other)
  Sender: FDA-Public Use
  Company Number: JP-GLAXOSMITHKLINE-B0878007A

PATIENT
  Age: 86 Year
  Sex: Female

DRUGS (11)
  1. ZOVIRAX [Suspect]
     Indication: HERPES ZOSTER
     Dosage: 250MG TWICE PER DAY
     Route: 042
     Dates: start: 20130321
  2. CRESTOR [Concomitant]
     Indication: HYPERLIPIDAEMIA
     Dosage: 2.5MG PER DAY
     Route: 048
     Dates: start: 20130321
  3. MAGLAX [Concomitant]
     Route: 048
  4. LENDORMIN [Concomitant]
     Route: 048
  5. ARICEPT [Concomitant]
     Indication: DEMENTIA
     Dosage: 5MG PER DAY
     Route: 048
     Dates: start: 20130321
  6. GABALON [Concomitant]
     Indication: TROPICAL SPASTIC PARESIS
     Dosage: 5MG THREE TIMES PER DAY
     Route: 048
     Dates: start: 20130321
  7. MENESIT [Concomitant]
     Indication: PARKINSON^S DISEASE
     Dosage: 50MG PER DAY
     Route: 048
     Dates: start: 20130321
  8. EPEL [Concomitant]
     Route: 048
  9. VITADAN [Concomitant]
     Route: 048
  10. CHINESE MEDICINE [Concomitant]
     Indication: TROPICAL SPASTIC PARESIS
     Dosage: 2.5G THREE TIMES PER DAY
     Route: 048
     Dates: start: 20130321
  11. ALANTA [Concomitant]
     Route: 048

REACTIONS (6)
  - Urinary tract infection [Unknown]
  - Urinary retention [Unknown]
  - Pyrexia [Recovered/Resolved]
  - Urine abnormality [Recovered/Resolved]
  - Dehydration [Unknown]
  - Pain [Unknown]
